FAERS Safety Report 9908105 (Version 1)
Quarter: 2013Q2

REPORT INFORMATION
  Report Type: Spontaneous
  Country: US (occurrence: None)
  Receive Date: 20130305
  Receipt Date: 20130305
  Transmission Date: 20140414
  Serious: Yes (Other)
  Sender: FDA-Public Use
  Company Number: 163-21880-12041842

PATIENT
  Age: 82 Year
  Sex: Female
  Weight: 51.7 kg

DRUGS (3)
  1. REVLIMID (LENALIDOMIDE) (10 MILLIGRAM, CAPSULES) [Suspect]
     Indication: PLASMA CELL MYELOMA
     Dosage: 10 MG, DAILY FOR 21 DAYS, PO
     Route: 048
     Dates: start: 20120302
  2. ASPIRIN (ACETYLSALICYLIC ACID) (UNKNOWN) (ACETYLSALICYLIC ACID) [Concomitant]
  3. POTASSIUM (POTASSIUM) (TABLETS) [Concomitant]

REACTIONS (4)
  - Diarrhoea [None]
  - Blood potassium decreased [None]
  - Dizziness [None]
  - Abdominal pain upper [None]
